FAERS Safety Report 10527649 (Version 1)
Quarter: 2014Q4

REPORT INFORMATION
  Report Type: Spontaneous
  Country: US (occurrence: None)
  Receive Date: 20141016
  Receipt Date: 20141016
  Transmission Date: 20150528
  Serious: Yes (Other)
  Sender: FDA-Public Use
  Company Number: None

PATIENT
  Age: 58 Year
  Sex: Male
  Weight: 86.18 kg

DRUGS (1)
  1. EXJADE [Suspect]
     Active Substance: DEFERASIROX
     Indication: BLOOD IRON INCREASED
     Route: 048
     Dates: start: 20141001, end: 20141009

REACTIONS (3)
  - Epistaxis [None]
  - Swollen tongue [None]
  - Rash [None]

NARRATIVE: CASE EVENT DATE: 20141009
